FAERS Safety Report 21100071 (Version 1)
Quarter: 2022Q3

REPORT INFORMATION
  Report Type: Spontaneous
  Country: US (occurrence: US)
  Receive Date: 20220719
  Receipt Date: 20220719
  Transmission Date: 20221027
  Serious: Yes (Other)
  Sender: FDA-Public Use
  Company Number: US-INTRA-CELLULAR THERAPIES, INC.-2022ICT00745

PATIENT
  Age: 46 Year
  Sex: Female
  Weight: 87.982 kg

DRUGS (7)
  1. CAPLYTA [Suspect]
     Active Substance: LUMATEPERONE
     Indication: Schizoaffective disorder
     Dosage: 42 MG, 1X/DAY AT BEDTIME
     Route: 048
     Dates: start: 20220404
  2. LAMICTAL [Concomitant]
     Active Substance: LAMOTRIGINE
  3. LEXAPRO [Concomitant]
     Active Substance: ESCITALOPRAM OXALATE
  4. FELODIPINE [Concomitant]
     Active Substance: FELODIPINE
  5. LEVOTHYROXINE [Concomitant]
     Active Substance: LEVOTHYROXINE
  6. PROPRANOLOL [Concomitant]
     Active Substance: PROPRANOLOL HYDROCHLORIDE
  7. VITAMIN D3 [Concomitant]
     Active Substance: CHOLECALCIFEROL

REACTIONS (15)
  - Paralysis [Recovering/Resolving]
  - Blood urine present [Recovered/Resolved]
  - Urinary incontinence [Recovered/Resolved]
  - Sensory disturbance [Recovering/Resolving]
  - Thinking abnormal [Recovering/Resolving]
  - Presyncope [Unknown]
  - Nephritis [Unknown]
  - Eye movement disorder [Unknown]
  - Hallucination, visual [Not Recovered/Not Resolved]
  - Hypotonia [Recovering/Resolving]
  - Dissociation [Recovering/Resolving]
  - Altered state of consciousness [Recovering/Resolving]
  - Musculoskeletal stiffness [Unknown]
  - Dizziness [Unknown]
  - Off label use [Not Recovered/Not Resolved]

NARRATIVE: CASE EVENT DATE: 20220628
